FAERS Safety Report 25437823 (Version 1)
Quarter: 2025Q2

REPORT INFORMATION
  Report Type: Spontaneous
  Country: US (occurrence: US)
  Receive Date: 20250616
  Receipt Date: 20250616
  Transmission Date: 20250717
  Serious: No
  Sender: AMGEN
  Company Number: US-AMGEN-USASP2025115173

PATIENT
  Sex: Male

DRUGS (2)
  1. REPATHA [Suspect]
     Active Substance: EVOLOCUMAB
     Indication: Product used for unknown indication
     Route: 065
  2. VYNDAMAX [Suspect]
     Active Substance: TAFAMIDIS
     Indication: Product used for unknown indication
     Dosage: 61 MILLIGRAM, QD
     Route: 065

REACTIONS (5)
  - Back pain [Not Recovered/Not Resolved]
  - Fatigue [Unknown]
  - Ill-defined disorder [Unknown]
  - Carpal tunnel syndrome [Unknown]
  - Tenodesis [Unknown]

NARRATIVE: CASE EVENT DATE: 20241001
